FAERS Safety Report 13374564 (Version 1)
Quarter: 2017Q1

REPORT INFORMATION
  Report Type: Report from Study
  Country: US (occurrence: US)
  Receive Date: 20170327
  Receipt Date: 20170327
  Transmission Date: 20170429
  Serious: Yes (Hospitalization)
  Sender: FDA-Public Use
  Company Number: US-EISAI MEDICAL RESEARCH-EC-2017-025160

PATIENT
  Sex: Male
  Weight: 92 kg

DRUGS (13)
  1. ALBUTEROL. [Concomitant]
     Active Substance: ALBUTEROL
  2. AFINITOR [Concomitant]
     Active Substance: EVEROLIMUS
  3. BENZONATATE. [Concomitant]
     Active Substance: BENZONATATE
  4. BREO ELLIPTA [Concomitant]
     Active Substance: FLUTICASONE FUROATE\VILANTEROL TRIFENATATE
  5. MONTELUKAST [Concomitant]
     Active Substance: MONTELUKAST SODIUM
  6. SUPPLEMENTAL OXYGEN [Concomitant]
     Active Substance: UNSPECIFIED INGREDIENT
  7. LENVIMA [Suspect]
     Active Substance: LENVATINIB
     Indication: RENAL CELL CARCINOMA
     Route: 048
     Dates: start: 20170125, end: 20170302
  8. LEVOTHYROXINE. [Concomitant]
     Active Substance: LEVOTHYROXINE
  9. TESTOSTERONE. [Concomitant]
     Active Substance: TESTOSTERONE
  10. OMEPRAZOLE. [Concomitant]
     Active Substance: OMEPRAZOLE
  11. LENVIMA [Suspect]
     Active Substance: LENVATINIB
     Route: 048
     Dates: start: 20170303, end: 201703
  12. AMLODIPINE [Concomitant]
     Active Substance: AMLODIPINE BESYLATE
  13. LOPRESSO [Concomitant]

REACTIONS (19)
  - Amnesia [Unknown]
  - Confusional state [Unknown]
  - Intervertebral disc protrusion [Unknown]
  - Myalgia [Unknown]
  - Musculoskeletal pain [Unknown]
  - Cough [Unknown]
  - Arthralgia [Unknown]
  - Hallucination [Unknown]
  - Stomatitis [Not Recovered/Not Resolved]
  - Night sweats [Not Recovered/Not Resolved]
  - Blood pressure increased [Recovered/Resolved]
  - Oxygen saturation decreased [Not Recovered/Not Resolved]
  - Tremor [Not Recovered/Not Resolved]
  - Upper-airway cough syndrome [Unknown]
  - Decreased appetite [Not Recovered/Not Resolved]
  - Pyrexia [Not Recovered/Not Resolved]
  - Fatigue [Not Recovered/Not Resolved]
  - Dyspnoea [Not Recovered/Not Resolved]
  - Epistaxis [Not Recovered/Not Resolved]

NARRATIVE: CASE EVENT DATE: 2017
